FAERS Safety Report 10360130 (Version 1)
Quarter: 2014Q3

REPORT INFORMATION
  Report Type: Spontaneous
  Country: US (occurrence: None)
  Receive Date: 20140801
  Receipt Date: 20140801
  Transmission Date: 20150326
  Serious: No
  Sender: FDA-Public Use
  Company Number: None

PATIENT
  Age: 63 Year
  Sex: Male
  Weight: 71 kg

DRUGS (10)
  1. ASPIRIN. [Concomitant]
     Active Substance: ASPIRIN
  2. ZIPRASIDONE [Concomitant]
     Active Substance: ZIPRASIDONE
  3. ZIPRASIDONE [Suspect]
     Active Substance: ZIPRASIDONE
     Indication: SCHIZOPHRENIA
     Route: 048
     Dates: start: 20140723, end: 20140728
  4. DEPAKOTE [Concomitant]
     Active Substance: DIVALPROEX SODIUM
  5. QUETIAPINE [Concomitant]
     Active Substance: QUETIAPINE
  6. SERTRALINE [Concomitant]
     Active Substance: SERTRALINE HYDROCHLORIDE
  7. ESOMEPRAZOLE [Concomitant]
     Active Substance: ESOMEPRAZOLE
  8. TRIAMCINOLONE [Concomitant]
     Active Substance: TRIAMCINOLONE
  9. RISPERIDONE. [Concomitant]
     Active Substance: RISPERIDONE
  10. SERTRALINE [Concomitant]
     Active Substance: SERTRALINE HYDROCHLORIDE

REACTIONS (1)
  - Rash [None]

NARRATIVE: CASE EVENT DATE: 20140728
